FAERS Safety Report 20142025 (Version 1)
Quarter: 2021Q4

REPORT INFORMATION
  Report Type: Report from Study
  Country: TW (occurrence: TW)
  Receive Date: 20211202
  Receipt Date: 20211202
  Transmission Date: 20220303
  Serious: Yes (Hospitalization, Other)
  Sender: FDA-Public Use
  Company Number: TW-TAKEDA-2021TUS076560

PATIENT
  Age: 63 Year
  Sex: Female

DRUGS (1)
  1. VEDOLIZUMAB [Suspect]
     Active Substance: VEDOLIZUMAB
     Indication: Colitis ulcerative
     Dosage: 300 MILLIGRAM
     Route: 042
     Dates: start: 20200415

REACTIONS (2)
  - Colitis ulcerative [Unknown]
  - Rectal stenosis [Unknown]

NARRATIVE: CASE EVENT DATE: 20211123
